FAERS Safety Report 19695616 (Version 5)
Quarter: 2022Q1

REPORT INFORMATION
  Report Type: Report from Study
  Country: US (occurrence: US)
  Receive Date: 20210813
  Receipt Date: 20220314
  Transmission Date: 20220423
  Serious: No
  Sender: FDA-Public Use
  Company Number: US-BIOVITRUM-2021US7456

PATIENT
  Sex: Female

DRUGS (2)
  1. KINERET [Suspect]
     Active Substance: ANAKINRA
     Indication: Rheumatoid arthritis
     Route: 058
     Dates: start: 202009
  2. KINERET [Suspect]
     Active Substance: ANAKINRA
     Route: 058
     Dates: start: 202009

REACTIONS (6)
  - Gastric disorder [Unknown]
  - Sinusitis [Unknown]
  - Bursitis [Unknown]
  - Fall [Unknown]
  - Face injury [Unknown]
  - Product dose omission issue [Unknown]
